FAERS Safety Report 7688720-7 (Version None)
Quarter: 2011Q3

REPORT INFORMATION
  Report Type: 
  Country: None (occurrence: None)
  Receive Date: 20110817
  Receipt Date: 20110810
  Transmission Date: 20111222
  Serious: Yes (Hospitalization)
  Sender: FDA-Public Use
  Company Number: FR-GLAXOSMITHKLINE-B0738602A

PATIENT
  Age: 67 Year
  Sex: Male

DRUGS (3)
  1. TEGRETOL [Concomitant]
     Dosage: 800MG PER DAY
     Route: 065
  2. ANAFRANIL [Concomitant]
     Dosage: 75MG PER DAY
     Route: 065
  3. LAMICTAL [Suspect]
     Indication: TRIGEMINAL NEURALGIA
     Dosage: 50MG TWICE PER DAY
     Route: 065
     Dates: end: 20110222

REACTIONS (10)
  - NAUSEA [None]
  - RASH ERYTHEMATOUS [None]
  - OFF LABEL USE [None]
  - DECREASED APPETITE [None]
  - SKIN EXFOLIATION [None]
  - TREMOR [None]
  - ILL-DEFINED DISORDER [None]
  - WEIGHT DECREASED [None]
  - DERMATITIS HERPETIFORMIS [None]
  - APATHY [None]
